FAERS Safety Report 20963350 (Version 2)
Quarter: 2023Q2

REPORT INFORMATION
  Report Type: Spontaneous
  Country: CA (occurrence: CA)
  Receive Date: 20220615
  Receipt Date: 20230523
  Transmission Date: 20230722
  Serious: Yes (Other)
  Sender: FDA-Public Use
  Company Number: CA-AMERICAN REGENT INC-2022001648

PATIENT
  Age: 76 Year
  Sex: Female

DRUGS (4)
  1. VENOFER [Suspect]
     Active Substance: IRON SUCROSE
     Indication: Anaemia
     Dosage: 100 MG/5ML
     Dates: start: 20220209, end: 20220209
  2. VENOFER [Suspect]
     Active Substance: IRON SUCROSE
     Indication: Blood iron decreased
  3. BENADRYL [Concomitant]
     Active Substance: DIPHENHYDRAMINE HYDROCHLORIDE
     Indication: Product used for unknown indication
     Dosage: 50 MILLIGRAM, STANDING MEDICATION ORDER
     Route: 042
     Dates: start: 20220209, end: 20220209
  4. DIMENHYDRINATE [Concomitant]
     Active Substance: DIMENHYDRINATE
     Indication: Product used for unknown indication
     Dosage: 50 MILLIGRAM, STANDING MEDICATION ORDER
     Route: 042
     Dates: start: 20220209, end: 20220209

REACTIONS (8)
  - Cold sweat [Unknown]
  - Pallor [Unknown]
  - Vital functions abnormal [Unknown]
  - Ill-defined disorder [Unknown]
  - Erythema [Unknown]
  - Urticaria [Unknown]
  - Feeling abnormal [Unknown]
  - Nausea [Unknown]

NARRATIVE: CASE EVENT DATE: 20220209
